FAERS Safety Report 5011977-8 (Version None)
Quarter: 2006Q2

REPORT INFORMATION
  Report Type: 
  Country: None (occurrence: None)
  Receive Date: 20060526
  Receipt Date: 20060511
  Transmission Date: 20061013
  Serious: Yes (Death, Hospitalization)
  Sender: FDA-Public Use
  Company Number: US-BRISTOL-MYERS SQUIBB COMPANY-13389705

PATIENT
  Age: 56 Year
  Sex: Male
  Weight: 63 kg

DRUGS (10)
  1. ERBITUX [Suspect]
     Indication: NON-SMALL CELL LUNG CANCER
     Dosage: THERAPY INITIATED 19-JAN-2006.
     Route: 042
     Dates: start: 20060329, end: 20060329
  2. DOCETAXEL [Suspect]
     Indication: NON-SMALL CELL LUNG CANCER
     Route: 042
     Dates: start: 20060322, end: 20060322
  3. ELAVIL [Concomitant]
     Route: 048
  4. AMITRIPTYLINE HCL [Concomitant]
     Route: 048
  5. PREDNISONE TAB [Concomitant]
     Route: 048
  6. MORPHINE [Concomitant]
     Route: 048
  7. LEVAQUIN [Concomitant]
     Route: 048
  8. LEXAPRO [Concomitant]
     Route: 048
  9. PRAZEPAM [Concomitant]
     Route: 048
  10. ALBUTEROL SULFATE AUTOHALER [Concomitant]

REACTIONS (6)
  - DYSPNOEA [None]
  - HAEMOPTYSIS [None]
  - HYPOXIA [None]
  - METASTASES TO LYMPH NODES [None]
  - PNEUMONITIS [None]
  - RESPIRATORY FAILURE [None]
